FAERS Safety Report 8500718-5 (Version None)
Quarter: 2012Q3

REPORT INFORMATION
  Report Type: 
  Country: None (occurrence: None)
  Receive Date: 20120710
  Receipt Date: 20120705
  Transmission Date: 20120928
  Serious: Yes (Hospitalization)
  Sender: FDA-Public Use
  Company Number: BR-ROCHE-1085020

PATIENT
  Sex: Male
  Weight: 82 kg

DRUGS (4)
  1. CLOPIDOGREL [Concomitant]
  2. ENALAPRIL MALEATE [Concomitant]
  3. SIMVASTATIN [Concomitant]
  4. MABTHERA [Suspect]
     Indication: RHEUMATOID ARTHRITIS
     Dates: start: 20111011, end: 20111026

REACTIONS (2)
  - CARDIAC DISORDER [None]
  - PNEUMONIA [None]
